FAERS Safety Report 7227183-2 (Version None)
Quarter: 2011Q1

REPORT INFORMATION
  Report Type: 
  Country: None (occurrence: None)
  Receive Date: 20110114
  Receipt Date: 20110112
  Transmission Date: 20110831
  Serious: Yes (Hospitalization, Other)
  Sender: FDA-Public Use
  Company Number: CO-PFIZER INC-2011008681

PATIENT
  Sex: Female

DRUGS (3)
  1. MEDROL [Suspect]
     Indication: RHEUMATOID ARTHRITIS
     Dosage: 4 MG, 1X/DAY
     Route: 048
  2. LOSARTAN [Concomitant]
  3. LOVASTATIN [Concomitant]

REACTIONS (3)
  - SKIN LESION [None]
  - THROMBOPHLEBITIS [None]
  - BACK PAIN [None]
